FAERS Safety Report 9799628 (Version 1)
Quarter: 2014Q1

REPORT INFORMATION
  Report Type: Spontaneous
  Country: US (occurrence: US)
  Receive Date: 20140106
  Receipt Date: 20140106
  Transmission Date: 20141002
  Serious: Yes (Hospitalization)
  Sender: FDA-Public Use
  Company Number: US-GILEAD-2010-0031589

PATIENT
  Age: 67 Year
  Sex: Female
  Weight: 127.1 kg

DRUGS (19)
  1. LETAIRIS [Suspect]
     Indication: PULMONARY ARTERIAL HYPERTENSION
     Route: 048
     Dates: start: 20091030
  2. TYVASO [Concomitant]
     Indication: PULMONARY ARTERIAL HYPERTENSION
  3. PLAVIX [Concomitant]
  4. ASPIRIN [Concomitant]
  5. TORSEMIDE [Concomitant]
  6. AMLODIPINE [Concomitant]
  7. ISOSORBIDE [Concomitant]
  8. NITROGLYCERIN [Concomitant]
  9. DARVOCET [Concomitant]
  10. LANTUS [Concomitant]
  11. NOVOLOG [Concomitant]
  12. HYDROXYZINE [Concomitant]
  13. ALLOPURINOL [Concomitant]
  14. COLCHICINE [Concomitant]
  15. TEMAZEPAM [Concomitant]
  16. METHOCARBAMOL [Concomitant]
  17. GAS X [Concomitant]
  18. SIMVASTATIN [Concomitant]
  19. MULTIVITAMIN [Concomitant]

REACTIONS (2)
  - Swelling [Unknown]
  - Anaemia [Unknown]
